FAERS Safety Report 6454852-4 (Version None)
Quarter: 2009Q4

REPORT INFORMATION
  Report Type: 
  Country: None (occurrence: None)
  Receive Date: 20091124
  Receipt Date: 20091116
  Transmission Date: 20100525
  Serious: Yes (Other)
  Sender: FDA-Public Use
  Company Number: ZA-PFIZER INC-2009297745

PATIENT
  Age: 51 Year
  Sex: Female

DRUGS (4)
  1. LYRICA [Suspect]
     Indication: NERVE COMPRESSION
     Dosage: 75 MG, 4X/DAY WHEN NEEDED
     Route: 048
  2. DOXYFENE [Concomitant]
     Dosage: 1 UNK, 3X/DAY
     Route: 048
  3. DOXYFENE [Concomitant]
     Dosage: 1 UNK, 1X/DAY
     Route: 048
  4. VALIUM [Concomitant]
     Dosage: 5 MG, UNK
     Route: 048
     Dates: start: 20091114

REACTIONS (4)
  - DRUG DEPENDENCE [None]
  - SPINAL FUSION SURGERY [None]
  - WEIGHT INCREASED [None]
  - WITHDRAWAL SYNDROME [None]
